FAERS Safety Report 9539254 (Version 1)
Quarter: 2013Q2

REPORT INFORMATION
  Report Type: Spontaneous
  Country: US (occurrence: None)
  Receive Date: 20130517
  Receipt Date: 20130517
  Transmission Date: 20140414
  Serious: No
  Sender: FDA-Public Use
  Company Number: 1000042758

PATIENT
  Sex: Female

DRUGS (1)
  1. VIIBRYD [Suspect]
     Indication: DEPRESSION
     Route: 048
     Dates: start: 20130212, end: 20130215

REACTIONS (5)
  - Headache [None]
  - Hypersomnia [None]
  - Diarrhoea [None]
  - Irritability [None]
  - Crying [None]
